FAERS Safety Report 18605083 (Version 1)
Quarter: 2020Q4

REPORT INFORMATION
  Report Type: Spontaneous
  Country: US (occurrence: US)
  Receive Date: 20201211
  Receipt Date: 20201211
  Transmission Date: 20210114
  Serious: No
  Sender: FDA-Public Use
  Company Number: None

PATIENT
  Age: 67 Year
  Sex: Female
  Weight: 55.8 kg

DRUGS (14)
  1. NYSTATIN 100000 UNIT/GRAM [Concomitant]
  2. LETROZOLE 2.5MG, ORAL [Concomitant]
  3. LOSARTAN POTASSIUM-HCTZ [Concomitant]
     Active Substance: HYDROCHLOROTHIAZIDE\LOSARTAN POTASSIUM
  4. FARXIGA 5MG, ORAL [Concomitant]
  5. VITAMIN D3 25MCG, ORAL [Concomitant]
  6. MAGNESIUM-OXIDE 400MG, ORAL [Concomitant]
  7. METFORMIN HCL 1000MG, ORAL [Concomitant]
  8. NOVOLOG 40 UNITS/ML, SC [Concomitant]
  9. KISQALI [Suspect]
     Active Substance: RIBOCICLIB
     Indication: BREAST CANCER
     Route: 048
     Dates: start: 20201118
  10. CLONAZEPAM 0.5MG, ORAL [Concomitant]
  11. ESCITALOPRAM OXALATE 10MG, ORAL [Concomitant]
  12. ASPIRIN 81MG, ORAL [Concomitant]
  13. DEXAMETHASONE 2MG, ORAL [Concomitant]
  14. GLIMEPIRIDE 4MG, ORAL [Concomitant]

REACTIONS (1)
  - Insomnia [None]

NARRATIVE: CASE EVENT DATE: 20201211
